FAERS Safety Report 21993723 (Version 2)
Quarter: 2023Q1

REPORT INFORMATION
  Report Type: Spontaneous
  Country: US (occurrence: US)
  Receive Date: 20230215
  Receipt Date: 20230218
  Transmission Date: 20230417
  Serious: Yes (Other)
  Sender: FDA-Public Use
  Company Number: US-002147023-NVSC2023US034088

PATIENT
  Sex: Male
  Weight: 93 kg

DRUGS (1)
  1. KYMRIAH [Suspect]
     Active Substance: TISAGENLECLEUCEL
     Indication: Acute lymphocytic leukaemia
     Dosage: UNK UNK, ONCE/SINGLE (1.4E8 CAR POSITIVE VIABLE T CELLS) (INDICATION KYMRIAH - PEDIATRIC ALL US)
     Route: 042
     Dates: start: 20210823

REACTIONS (1)
  - Acute lymphocytic leukaemia recurrent [Unknown]
